FAERS Safety Report 22137084 (Version 1)
Quarter: 2023Q1

REPORT INFORMATION
  Report Type: Spontaneous
  Country: US (occurrence: US)
  Receive Date: 20230324
  Receipt Date: 20230324
  Transmission Date: 20230418
  Serious: Yes (Other)
  Sender: FDA-Public Use
  Company Number: US-002147023-NVSC2023US065491

PATIENT
  Age: 16 Year
  Sex: Male
  Weight: 88 kg

DRUGS (38)
  1. DEXMEDETOMIDINE [Suspect]
     Active Substance: DEXMEDETOMIDINE
     Indication: Product used for unknown indication
     Dosage: UNK (0.3 MCG/KG/H) 2 ND HOUR
     Route: 040
  2. DEXMEDETOMIDINE [Suspect]
     Active Substance: DEXMEDETOMIDINE
     Dosage: UNK(0.3 MCG/KG/H) 3 RD HOUR
     Route: 040
  3. DEXMEDETOMIDINE [Suspect]
     Active Substance: DEXMEDETOMIDINE
     Dosage: UNK (0.2 MCG/KG/H) 4 TH HOUR
     Route: 040
  4. PROPOFOL [Concomitant]
     Active Substance: PROPOFOL
     Indication: Product used for unknown indication
     Dosage: 200 MG (INDUCTION)
     Route: 065
  5. PROPOFOL [Concomitant]
     Active Substance: PROPOFOL
     Dosage: 100 MG,1ST HOUR
     Route: 065
  6. PROPOFOL [Concomitant]
     Active Substance: PROPOFOL
     Dosage: UNK (150-175 MCG/KG/MIN) 1 HOUR, INFUSION
     Route: 065
  7. PROPOFOL [Concomitant]
     Active Substance: PROPOFOL
     Dosage: UNK (150-175 MCG/KG/MIN) 2 ND HOUR,INFUSION
     Route: 065
  8. PROPOFOL [Concomitant]
     Active Substance: PROPOFOL
     Dosage: UNK (150 MCG/KG/MIN) 3 RD HOUR,INFUSION
     Route: 065
  9. PROPOFOL [Concomitant]
     Active Substance: PROPOFOL
     Dosage: UNK (150 MCG/KG/MIN) 4 TH HOUR,INFUSION
     Route: 065
  10. PROPOFOL [Concomitant]
     Active Substance: PROPOFOL
     Dosage: UNK (150 MCG/KG/MIN) 5 TH HOUR,INFUSION
     Route: 065
  11. PROPOFOL [Concomitant]
     Active Substance: PROPOFOL
     Dosage: UNK (80-150) MCG/KG/MIN 6 TH HOUR,INFUSION
     Route: 065
  12. PROPOFOL [Concomitant]
     Active Substance: PROPOFOL
     Dosage: UNK 80 MCG/KG/MIN 7 HOUR,INFUSION
     Route: 065
  13. SEVOFLURANE [Concomitant]
     Active Substance: SEVOFLURANE
     Indication: Product used for unknown indication
     Dosage: UNK (0.2-0.6 MAC) 1 ST HOUR
     Route: 065
  14. SEVOFLURANE [Concomitant]
     Active Substance: SEVOFLURANE
     Dosage: UNK (0.4-0.5 MAC) 2 ND HOUR
     Route: 065
  15. SEVOFLURANE [Concomitant]
     Active Substance: SEVOFLURANE
     Dosage: UNK (0.2-0.3 MAC) 3 RD HOUR
     Route: 065
  16. SEVOFLURANE [Concomitant]
     Active Substance: SEVOFLURANE
     Dosage: UNK (0.1 MAC) 4 TH HOUR
     Route: 065
  17. SEVOFLURANE [Concomitant]
     Active Substance: SEVOFLURANE
     Dosage: UNK(0.3-0.5 MAC) 5 TH HOUR
     Route: 065
  18. SEVOFLURANE [Concomitant]
     Active Substance: SEVOFLURANE
     Dosage: UNK (0.5-0.6) MAC 6 TH HOUR
     Route: 065
  19. SEVOFLURANE [Concomitant]
     Active Substance: SEVOFLURANE
     Dosage: UNK (0.6-0.8 MAC) 7 TH HOUR
     Route: 065
  20. SEVOFLURANE [Concomitant]
     Active Substance: SEVOFLURANE
     Dosage: UNK (0.2-0.7 MAC) 8 TH HOUR
     Route: 065
  21. MIDAZOLAM [Concomitant]
     Active Substance: MIDAZOLAM
     Indication: Product used for unknown indication
     Dosage: 2 MG (INDUCTION)
     Route: 065
  22. ROCURONIUM [Concomitant]
     Active Substance: ROCURONIUM BROMIDE
     Indication: Product used for unknown indication
     Dosage: 50 MG (INDUCTION)
     Route: 065
  23. ROCURONIUM [Concomitant]
     Active Substance: ROCURONIUM BROMIDE
     Dosage: 70 MG (1 ST HOUR)
     Route: 065
  24. FENTANYL [Concomitant]
     Active Substance: FENTANYL
     Indication: Product used for unknown indication
     Dosage: 50 MCG (INDUCTION)
     Route: 065
  25. FENTANYL [Concomitant]
     Active Substance: FENTANYL
     Dosage: UNK (50 MCG 1 ST HOUR)
     Route: 065
  26. LIDOCAINE [Concomitant]
     Active Substance: LIDOCAINE
     Indication: Product used for unknown indication
     Dosage: 100 MG (INTRA-OPERATIVE TOTAL)
     Route: 065
  27. REMIFENTANIL [Concomitant]
     Active Substance: REMIFENTANIL
     Indication: Product used for unknown indication
     Dosage: UNK (0. 2 MC/KG/H) INDUCTION2
     Route: 065
  28. REMIFENTANIL [Concomitant]
     Active Substance: REMIFENTANIL
     Dosage: UNK (0.25-0.3 MC/KG/H) 1 HOUR
     Route: 065
  29. REMIFENTANIL [Concomitant]
     Active Substance: REMIFENTANIL
     Dosage: UNK (0.3 MC/KG/H) 2 ND HOUR
     Route: 065
  30. REMIFENTANIL [Concomitant]
     Active Substance: REMIFENTANIL
     Dosage: UNK (0.3 MC/KG/H)3 RD HOUR
     Route: 065
  31. REMIFENTANIL [Concomitant]
     Active Substance: REMIFENTANIL
     Dosage: UNK (0.3 MC/KG/H) 4 TH HOUR
     Route: 065
  32. REMIFENTANIL [Concomitant]
     Active Substance: REMIFENTANIL
     Dosage: UNK (0.3 MC/KG/H) 5 TH HOUR
     Route: 065
  33. REMIFENTANIL [Concomitant]
     Active Substance: REMIFENTANIL
     Dosage: UNK(0.3 MC/KG/H) 6 TH HOUR
     Route: 065
  34. REMIFENTANIL [Concomitant]
     Active Substance: REMIFENTANIL
     Dosage: UNK(0.3 MC/KG/H) 7 TH HOUR
     Route: 065
  35. ALBUMIN NOS [Concomitant]
     Indication: Product used for unknown indication
     Dosage: 500 ML (2ND HOUR)
     Route: 065
  36. SODIUM CHLORIDE [Concomitant]
     Active Substance: SODIUM CHLORIDE
     Indication: Product used for unknown indication
     Dosage: 500 ML (4TH HOUR)
     Route: 065
  37. SODIUM CHLORIDE [Concomitant]
     Active Substance: SODIUM CHLORIDE
     Dosage: 500 ML (5TH HOUR)
     Route: 065
  38. SODIUM CHLORIDE [Concomitant]
     Active Substance: SODIUM CHLORIDE
     Dosage: 1000 ML (8TH HOUR)
     Route: 065

REACTIONS (1)
  - Diabetes insipidus [Recovered/Resolved]
